FAERS Safety Report 19693374 (Version 4)
Quarter: 2021Q3

REPORT INFORMATION
  Report Type: Spontaneous
  Country: US (occurrence: US)
  Receive Date: 20210812
  Receipt Date: 20210826
  Transmission Date: 20211014
  Serious: No
  Sender: FDA-Public Use
  Company Number: US-SA-2021SA263384

PATIENT
  Age: 51 Year
  Sex: Male

DRUGS (2)
  1. HUMALOG [Concomitant]
     Active Substance: INSULIN LISPRO
     Dosage: UNK
     Route: 065
  2. LANTUS SOLOSTAR [Suspect]
     Active Substance: INSULIN GLARGINE
     Indication: TYPE 1 DIABETES MELLITUS
     Dosage: (4 TO 20 UNITS), Q12H
     Route: 065

REACTIONS (7)
  - Incorrect dose administered by device [Unknown]
  - Device issue [Unknown]
  - Multiple use of single-use product [Unknown]
  - Inappropriate schedule of product administration [Unknown]
  - Product storage error [Unknown]
  - Visual impairment [Unknown]
  - Blood glucose increased [Unknown]
